FAERS Safety Report 11533203 (Version 1)
Quarter: 2015Q3

REPORT INFORMATION
  Report Type: Spontaneous
  Country: CH (occurrence: CH)
  Receive Date: 20150921
  Receipt Date: 20150921
  Transmission Date: 20151125
  Serious: Yes (Hospitalization)
  Sender: FDA-Public Use
  Company Number: CH-TEVA-595337ISR

PATIENT
  Age: 22 Year
  Sex: Female

DRUGS (2)
  1. INSULIN ASPART [Suspect]
     Active Substance: INSULIN ASPART
     Indication: INTENTIONAL OVERDOSE
     Dosage: 1200IU
     Route: 065
  2. ATENOLOL. [Suspect]
     Active Substance: ATENOLOL
     Indication: INTENTIONAL OVERDOSE
     Dosage: 10G (100 TABLETS)
     Route: 048

REACTIONS (6)
  - Toxicity to various agents [Recovered/Resolved]
  - Bradycardia [Recovered/Resolved]
  - Hypoglycaemic coma [Recovered/Resolved]
  - Intentional overdose [Recovered/Resolved]
  - Suicide attempt [Recovered/Resolved]
  - Hypotension [Recovered/Resolved]
